FAERS Safety Report 12457700 (Version 1)
Quarter: 2016Q2

REPORT INFORMATION
  Report Type: Other
  Country: GB (occurrence: GB)
  Receive Date: 20160611
  Receipt Date: 20160611
  Transmission Date: 20160815
  Serious: Yes (Other)
  Sender: FDA-Public Use
  Company Number: GB-CLARIS PHARMASERVICES-1053700

PATIENT
  Age: 1 Day

DRUGS (2)
  1. ONDANSETRON HYDROCHLORIDE. [Suspect]
     Active Substance: ONDANSETRON HYDROCHLORIDE
     Indication: FOETAL EXPOSURE DURING PREGNANCY
     Route: 064
  2. ONDANSETRON HYDROCHLORIDE (ANDA 078287) [Suspect]
     Active Substance: ONDANSETRON HYDROCHLORIDE
     Route: 064

REACTIONS (2)
  - Infantile vomiting [Recovered/Resolved]
  - Maternal drugs affecting foetus [Recovered/Resolved]
